FAERS Safety Report 14763488 (Version 4)
Quarter: 2020Q2

REPORT INFORMATION
  Report Type: Report from Study
  Country: SE (occurrence: SE)
  Receive Date: 20180416
  Receipt Date: 20200625
  Transmission Date: 20200713
  Serious: Yes (Death, Hospitalization)
  Sender: FDA-Public Use
  Company Number: SE-ACTELION-A-CH2018-169231

PATIENT
  Age: 71 Year
  Sex: Female
  Weight: 117 kg

DRUGS (7)
  1. METFORMIN [Concomitant]
     Active Substance: METFORMIN HYDROCHLORIDE
     Indication: DIABETES MELLITUS
     Route: 048
  2. APIXABAN [Concomitant]
     Active Substance: APIXABAN
     Route: 048
  3. ADCIRCA [Concomitant]
     Active Substance: TADALAFIL
     Indication: PULMONARY ARTERIAL HYPERTENSION
     Dosage: 40 MG, QD
     Route: 048
     Dates: start: 20180307
  4. ENALAPRIL [Concomitant]
     Active Substance: ENALAPRIL
     Dosage: UNK
     Route: 048
  5. FUROSEMID [Concomitant]
     Active Substance: FUROSEMIDE
     Route: 048
  6. MACITENTAN [Suspect]
     Active Substance: MACITENTAN
     Indication: PULMONARY ARTERIAL HYPERTENSION
     Dosage: 10 MG, QD
     Route: 048
     Dates: start: 20180207, end: 20180314
  7. SPIRONOLACTONE. [Concomitant]
     Active Substance: SPIRONOLACTONE
     Indication: CARDIAC FAILURE
     Route: 048

REACTIONS (12)
  - Right ventricular failure [Fatal]
  - Pulmonary arterial hypertension [Fatal]
  - Blood creatinine increased [Unknown]
  - Oedema peripheral [Fatal]
  - Systolic dysfunction [Fatal]
  - Disease progression [Fatal]
  - Right ventricular enlargement [Fatal]
  - Tricuspid valve incompetence [Fatal]
  - Nasopharyngitis [Unknown]
  - Inferior vena cava dilatation [Fatal]
  - Dyspnoea [Fatal]
  - Peripheral swelling [Fatal]

NARRATIVE: CASE EVENT DATE: 201803
